FAERS Safety Report 21572638 (Version 3)
Quarter: 2023Q1

REPORT INFORMATION
  Report Type: Report from Study
  Country: CN (occurrence: CN)
  Receive Date: 20221109
  Receipt Date: 20230207
  Transmission Date: 20230418
  Serious: Yes (Other)
  Sender: FDA-Public Use
  Company Number: CN-TAKEDA-2022TUS081831

PATIENT
  Age: 36 Year
  Sex: Male

DRUGS (18)
  1. VEDOLIZUMAB [Suspect]
     Active Substance: VEDOLIZUMAB
     Indication: Colitis ulcerative
     Dosage: 300 MILLIGRAM
     Route: 042
     Dates: start: 20221014
  2. MESALAMINE [Concomitant]
     Active Substance: MESALAMINE
     Indication: Inflammatory bowel disease
     Dosage: UNK
     Dates: start: 20220930
  3. MESALAMINE [Concomitant]
     Active Substance: MESALAMINE
     Indication: Inflammatory bowel disease
     Dosage: 1 GRAM, TID
     Route: 048
     Dates: start: 20220930
  4. RIFAXIMIN [Concomitant]
     Active Substance: RIFAXIMIN
     Indication: Inflammatory bowel disease
     Dosage: 0.2 GRAM, TID
     Route: 048
     Dates: start: 20221013
  5. MIYA [Concomitant]
     Indication: Inflammatory bowel disease
     Dosage: UNK UNK, TID
     Route: 048
     Dates: start: 20221013
  6. LEVOFLOXACIN SODIUM [Concomitant]
     Active Substance: LEVOFLOXACIN SODIUM
     Indication: Anti-infective therapy
     Dosage: 0.5 GRAM, QD
     Route: 042
     Dates: start: 20221014, end: 20221016
  7. DEXTROSE [Concomitant]
     Active Substance: DEXTROSE
     Indication: Nutritional supplementation
     Dosage: 500 MILLILITER, QD
     Route: 042
     Dates: start: 20221014, end: 20221014
  8. MAGNESIUM ISOGLYCYRRHIZINATE [Concomitant]
     Active Substance: MAGNESIUM ISOGLYCYRRHIZINATE
     Indication: Liver disorder
     Dosage: 150 MILLIGRAM, QD
     Route: 042
     Dates: start: 20221013, end: 20221016
  9. FLUPENTIXOL\MELITRACEN [Concomitant]
     Active Substance: FLUPENTIXOL\MELITRACEN
     Indication: Anxiety
     Dosage: 1 MILLIGRAM, QD
     Route: 048
     Dates: start: 20221014
  10. ILAPRAZOLE [Concomitant]
     Active Substance: ILAPRAZOLE
     Indication: Inflammatory bowel disease
     Dosage: 500 MILLIGRAM, QD
     Route: 042
     Dates: start: 20221015, end: 20221017
  11. ALPRAZOLAM [Concomitant]
     Active Substance: ALPRAZOLAM
     Indication: Anxiety
     Dosage: 0.4 MILLIGRAM, QD
     Route: 048
     Dates: start: 20221014, end: 20221017
  12. ZOLPIDEM TARTRATE [Concomitant]
     Active Substance: ZOLPIDEM TARTRATE
     Indication: Anxiety
     Dosage: 10 MILLIGRAM, QD
     Route: 048
     Dates: start: 20221018
  13. PINAVERIUM BROMIDE [Concomitant]
     Active Substance: PINAVERIUM BROMIDE
     Indication: Inflammatory bowel disease
     Dosage: 100 MILLIGRAM, QD
     Route: 048
     Dates: start: 20221014, end: 20221014
  14. PINAVERIUM BROMIDE [Concomitant]
     Active Substance: PINAVERIUM BROMIDE
     Dosage: 50 MILLIGRAM, QD
     Route: 048
     Dates: start: 20221015, end: 20221016
  15. PINAVERIUM BROMIDE [Concomitant]
     Active Substance: PINAVERIUM BROMIDE
     Dosage: 50 MILLIGRAM
     Route: 048
     Dates: start: 20221019
  16. ORNIDAZOLE [Concomitant]
     Active Substance: ORNIDAZOLE
     Indication: Anti-infective therapy
     Dosage: .5 GRAM, QD
     Route: 042
     Dates: start: 20221015, end: 20221015
  17. REBAMIPIDE [Concomitant]
     Active Substance: REBAMIPIDE
     Indication: Gastrointestinal disorder prophylaxis
     Dosage: 0.1 GRAM, QD
     Route: 048
     Dates: start: 20221015, end: 20221015
  18. VITAMIN C [Concomitant]
     Active Substance: ASCORBIC ACID
     Indication: Nutritional supplementation
     Dosage: 1 GRAM, QD
     Route: 042
     Dates: start: 20221018, end: 20221018

REACTIONS (5)
  - Cholecystitis [Not Recovered/Not Resolved]
  - Haemangioma of liver [Not Recovered/Not Resolved]
  - Hepatic cyst [Not Recovered/Not Resolved]
  - Breast pain [Recovered/Resolved]
  - COVID-19 [Recovered/Resolved]

NARRATIVE: CASE EVENT DATE: 20221017
